FAERS Safety Report 4461993-X (Version None)
Quarter: 2004Q3

REPORT INFORMATION
  Report Type: 
  Country: None (occurrence: None)
  Receive Date: 20040929
  Receipt Date: 20040921
  Transmission Date: 20050211
  Serious: Yes (Other)
  Sender: FDA-Public Use
  Company Number: PHEH2004US10156

PATIENT
  Age: 58 Year
  Sex: Female

DRUGS (1)
  1. ZOMETA [Suspect]
     Indication: METASTASES TO BONE
     Dosage: MONTHLY
     Dates: start: 20030101, end: 20040601

REACTIONS (5)
  - DENTAL OPERATION [None]
  - DENTAL TREATMENT [None]
  - INFECTION [None]
  - LOCALISED INFECTION [None]
  - OSTEOMYELITIS [None]
